FAERS Safety Report 5019351-5 (Version None)
Quarter: 2006Q2

REPORT INFORMATION
  Report Type: 
  Country: None (occurrence: None)
  Receive Date: 20060531
  Receipt Date: 20060523
  Transmission Date: 20061013
  Serious: Yes (Death, Hospitalization)
  Sender: FDA-Public Use
  Company Number: 2006061639

PATIENT
  Age: 43 Year
  Sex: Female
  Weight: 69.2 kg

DRUGS (7)
  1. SUTENT [Suspect]
     Indication: COLORECTAL CANCER METASTATIC
     Dosage: 50 MG (50 MG, CYCLIC); ORAL
     Route: 048
     Dates: start: 20060407, end: 20060509
  2. FLUOROURACIL [Suspect]
     Indication: COLORECTAL CANCER METASTATIC
     Dosage: 4032 (2 WKLY, INTERVAL; EVERY 2 WEEKS); INTRAVENOUS
     Route: 042
     Dates: start: 20060422, end: 20060424
  3. IRINOTECAN HCL [Suspect]
     Indication: COLORECTAL CANCER METASTATIC
     Dosage: 270 (2 WKLY, INTERVAL: EVERY 2 WEEKS); INTRAVENOUS
     Route: 042
     Dates: start: 20060422
  4. LEUCOVORIN CALCIUM [Suspect]
     Indication: COLORECTAL CANCER METASTATIC
     Dosage: 360 (2 WKLY INTERVAL: EVERY 2 WEEKS); INTRAVENOUS
     Route: 042
     Dates: start: 20060422
  5. LANSOPRAZOLE [Concomitant]
  6. CO-CODAMOL (CODEINE PHOSPHATE, PARACETAMOL [Concomitant]
  7. MORPHINE SULFATE [Concomitant]

REACTIONS (16)
  - ABDOMINAL PAIN [None]
  - BLOOD ALBUMIN INCREASED [None]
  - BLOOD PRESSURE DIASTOLIC DECREASED [None]
  - CLOSTRIDIAL INFECTION [None]
  - DIARRHOEA [None]
  - DRUG INEFFECTIVE [None]
  - HYPERTENSION [None]
  - INFECTION [None]
  - MUSCLE SPASMS [None]
  - NEUTROPHIL COUNT INCREASED [None]
  - PERIPHERAL COLDNESS [None]
  - PYREXIA [None]
  - TACHYCARDIA [None]
  - URINE OUTPUT DECREASED [None]
  - VOMITING [None]
  - WHITE BLOOD CELL COUNT INCREASED [None]
